FAERS Safety Report 23122913 (Version 1)
Quarter: 2023Q4

REPORT INFORMATION
  Report Type: Report from Study
  Country: US (occurrence: US)
  Receive Date: 20231030
  Receipt Date: 20231030
  Transmission Date: 20240110
  Serious: Yes (Other)
  Sender: FDA-Public Use
  Company Number: US-ABBVIE-5470786

PATIENT
  Sex: Female

DRUGS (2)
  1. RINVOQ [Suspect]
     Active Substance: UPADACITINIB
     Indication: Rheumatoid arthritis
     Dosage: FORM STREGNTH: 15 MG
     Route: 048
     Dates: start: 2016, end: 202303
  2. RINVOQ [Suspect]
     Active Substance: UPADACITINIB
     Indication: Rheumatoid arthritis
     Dosage: FORM STREGNTH: 15 MG
     Route: 048
     Dates: start: 202309

REACTIONS (6)
  - Breast cancer stage I [Unknown]
  - Rheumatoid arthritis [Recovering/Resolving]
  - Poor personal hygiene [Recovering/Resolving]
  - Muscular weakness [Not Recovered/Not Resolved]
  - Allergy to chemicals [Unknown]
  - Breast disorder [Unknown]

NARRATIVE: CASE EVENT DATE: 20230101
